FAERS Safety Report 5444618-6 (Version None)
Quarter: 2007Q3

REPORT INFORMATION
  Report Type: 
  Country: None (occurrence: None)
  Receive Date: 20070904
  Receipt Date: 20070904
  Transmission Date: 20080115
  Serious: Yes (Other)
  Sender: FDA-Public Use
  Company Number: None

PATIENT
  Age: 74 Year
  Sex: Female
  Weight: 68.9467 kg

DRUGS (2)
  1. VECTIBIX [Suspect]
     Indication: COLON CANCER
     Dosage: 420 MG EVERY 2 WEEKS IV
     Route: 042
     Dates: start: 20070809, end: 20070830
  2. VECTIBIX [Suspect]

REACTIONS (1)
  - CHILLS [None]
